FAERS Safety Report 4888242-2 (Version None)
Quarter: 2006Q1

REPORT INFORMATION
  Report Type: 
  Country: None (occurrence: None)
  Receive Date: 20060123
  Receipt Date: 20060113
  Transmission Date: 20060701
  Serious: Yes (Hospitalization)
  Sender: FDA-Public Use
  Company Number: US-JNJFOC-20051106234

PATIENT
  Sex: Male
  Weight: 94.35 kg

DRUGS (2)
  1. REMICADE [Suspect]
     Indication: DRUG USE FOR UNKNOWN INDICATION
     Route: 042
  2. FLU VACCINE [Concomitant]
     Dosage: FLU VACCINE WAS GIVEN ON THE SAME DAY AS INFUSION

REACTIONS (6)
  - BACK PAIN [None]
  - CHILLS [None]
  - FEELING ABNORMAL [None]
  - INFUSION RELATED REACTION [None]
  - PYREXIA [None]
  - STAPHYLOCOCCAL INFECTION [None]
